FAERS Safety Report 4667245-7 (Version None)
Quarter: 2005Q2

REPORT INFORMATION
  Report Type: 
  Country: None (occurrence: None)
  Receive Date: 20050520
  Receipt Date: 20040809
  Transmission Date: 20051028
  Serious: Yes (Other)
  Sender: FDA-Public Use
  Company Number: PHEH2004US08578

PATIENT
  Age: 65 Year
  Sex: Female

DRUGS (7)
  1. ZOMETA [Suspect]
     Indication: BREAST CANCER METASTATIC
     Dosage: 4 MG MONTHLY
     Route: 042
     Dates: start: 20011212, end: 20030120
  2. TAMOXIFEN [Concomitant]
     Dosage: 20 MG, QD
     Dates: start: 20000101, end: 20010101
  3. ARIMIDEX [Concomitant]
     Dosage: 1 MG, UNK
     Dates: start: 20010101
  4. LISINOPRIL TABLETS (NGX) [Concomitant]
  5. PAXIL [Concomitant]
     Dosage: 10 MG, UNK
  6. PROTONIX ^WYETH-AYERST^ [Concomitant]
     Dosage: 40 MG, UNK
  7. RADIATION THERAPY [Concomitant]

REACTIONS (3)
  - BONE DISORDER [None]
  - DENTAL ALVEOLAR ANOMALY [None]
  - OSTEONECROSIS [None]
